FAERS Safety Report 8304064-4 (Version None)
Quarter: 2012Q2

REPORT INFORMATION
  Report Type: 
  Country: None (occurrence: None)
  Receive Date: 20120423
  Receipt Date: 20120412
  Transmission Date: 20120825
  Serious: Yes (Other)
  Sender: FDA-Public Use
  Company Number: US-BRISTOL-MYERS SQUIBB COMPANY-16521205

PATIENT

DRUGS (1)
  1. METFORMIN HCL [Suspect]

REACTIONS (1)
  - RENAL FAILURE [None]
